FAERS Safety Report 10409296 (Version 1)
Quarter: 2014Q3

REPORT INFORMATION
  Report Type: Spontaneous
  Country: US (occurrence: None)
  Receive Date: 20140825
  Receipt Date: 20140825
  Transmission Date: 20150326
  Serious: Yes (Life-Threatening, Hospitalization)
  Sender: FDA-Public Use
  Company Number: None

PATIENT
  Age: 44 Year
  Sex: Female
  Weight: 75.3 kg

DRUGS (1)
  1. BUPROPION [Suspect]
     Active Substance: BUPROPION
     Indication: ANTIDEPRESSANT THERAPY
     Route: 048
     Dates: start: 20140730, end: 20140815

REACTIONS (2)
  - Rash [None]
  - Adverse reaction [None]

NARRATIVE: CASE EVENT DATE: 20140815
